FAERS Safety Report 8769220 (Version 1)
Quarter: 2012Q4

REPORT INFORMATION
  Report Type: 
  Country: US (occurrence: US)
  Receive Date: 20120905
  Receipt Date: 20120905
  Transmission Date: 20130627
  Serious: No
  Sender: FDA-Public Use
  Company Number: US-PFIZER INC-2012215214

PATIENT
  Age: 32 Year
  Sex: Male
  Weight: 70.3 kg

DRUGS (1)
  1. ADVIL PM [Suspect]
     Indication: INSOMNIA
     Dosage: three tablets daily
     Route: 048
     Dates: start: 201208

REACTIONS (1)
  - Drug ineffective [Unknown]
